FAERS Safety Report 20333031 (Version 2)
Quarter: 2022Q1

REPORT INFORMATION
  Report Type: Spontaneous
  Country: US (occurrence: US)
  Receive Date: 20220113
  Receipt Date: 20220127
  Transmission Date: 20220423
  Serious: Yes (Hospitalization, Other)
  Sender: FDA-Public Use
  Company Number: US-PFIZER INC-202200011017

PATIENT
  Age: 45 Year
  Sex: Male

DRUGS (1)
  1. RITUXIMAB [Suspect]
     Active Substance: RITUXIMAB
     Indication: Immunosuppressant drug therapy
     Dosage: EVERY SIX MONTHS

REACTIONS (2)
  - COVID-19 pneumonia [Recovering/Resolving]
  - Acute respiratory distress syndrome [Recovering/Resolving]
